FAERS Safety Report 6005050-X (Version None)
Quarter: 2008Q4

REPORT INFORMATION
  Report Type: 
  Country: None (occurrence: None)
  Receive Date: 20081216
  Receipt Date: 20081208
  Transmission Date: 20090506
  Serious: Yes (Hospitalization)
  Sender: FDA-Public Use
  Company Number: PHHY2008FR31316

PATIENT
  Age: 16 Year
  Sex: Male

DRUGS (1)
  1. RITALIN [Suspect]
     Indication: PSYCHOMOTOR HYPERACTIVITY

REACTIONS (3)
  - CLAVICLE FRACTURE [None]
  - ELECTROCARDIOGRAM ST SEGMENT DEPRESSION [None]
  - LOSS OF CONSCIOUSNESS [None]
